FAERS Safety Report 5913495-9 (Version None)
Quarter: 2008Q4

REPORT INFORMATION
  Report Type: 
  Country: None (occurrence: None)
  Receive Date: 20081008
  Receipt Date: 20081008
  Transmission Date: 20090506
  Serious: Yes (Hospitalization)
  Sender: FDA-Public Use
  Company Number: None

PATIENT
  Age: 38 Year
  Sex: Female
  Weight: 43.0917 kg

DRUGS (1)
  1. HUMIRA [Suspect]
     Indication: SYSTEMIC LUPUS ERYTHEMATOSUS
     Dosage: ONE SYRINGE 2X/MONTH IM
     Route: 030
     Dates: start: 20050801, end: 20051101

REACTIONS (2)
  - PYREXIA [None]
  - WEIGHT DECREASED [None]
